FAERS Safety Report 19879390 (Version 2)
Quarter: 2025Q4

REPORT INFORMATION
  Report Type: Spontaneous
  Country: GB (occurrence: GB)
  Receive Date: 20210924
  Receipt Date: 20251201
  Transmission Date: 20260117
  Serious: Yes (Other)
  Sender: TORRENT PHARMA INC.
  Company Number: None

PATIENT
  Age: 36 Year
  Sex: Female
  Weight: 59 kg

DRUGS (3)
  1. LAMOTRIGINE [Interacting]
     Active Substance: LAMOTRIGINE
     Indication: Epilepsy
     Dosage: 75 MG BD
     Route: 048
     Dates: start: 2012
  2. ETHINYL ESTRADIOL\NORGESTIMATE [Interacting]
     Active Substance: ETHINYL ESTRADIOL\NORGESTIMATE
     Indication: Product used for unknown indication
     Dosage: UNKNOWN
     Route: 065
  3. DROSPIRENONE\ETHINYL ESTRADIOL [Suspect]
     Active Substance: DROSPIRENONE\ETHINYL ESTRADIOL
     Indication: Ill-defined disorder
     Dosage: UNKNOWN
     Route: 048
     Dates: start: 20210713, end: 20210724

REACTIONS (7)
  - Seizure [Recovered/Resolved]
  - Medication error [Unknown]
  - Fall [Unknown]
  - Generalised tonic-clonic seizure [Recovered/Resolved]
  - Drug interaction [Unknown]
  - Impaired driving ability [Unknown]
  - Psychiatric symptom [Unknown]
